FAERS Safety Report 14247907 (Version 27)
Quarter: 2022Q1

REPORT INFORMATION
  Report Type: Spontaneous
  Country: BR (occurrence: BR)
  Receive Date: 20171204
  Receipt Date: 20220302
  Transmission Date: 20220423
  Serious: Yes (Hospitalization, Other)
  Sender: FDA-Public Use
  Company Number: BR-GLAXOSMITHKLINE-BR2017GSK182008

PATIENT
  Age: 35 Year
  Sex: Female
  Weight: 62 kg

DRUGS (23)
  1. BENLYSTA [Suspect]
     Active Substance: BELIMUMAB
     Indication: Systemic lupus erythematosus
     Dosage: 760 MG, UNK, 5 VIALS OF 120 MG
     Route: 042
     Dates: start: 20171024
  2. BENLYSTA [Suspect]
     Active Substance: BELIMUMAB
     Dosage: 120 MG
  3. BENLYSTA [Suspect]
     Active Substance: BELIMUMAB
     Dosage: UNK
     Dates: start: 20171025, end: 20211021
  4. VITAMIN D [Suspect]
     Active Substance: VITAMIN D NOS
     Indication: Hypovitaminosis
     Dosage: UNK
  5. VITAMIN B12 [Suspect]
     Active Substance: CYANOCOBALAMIN
     Indication: Hypovitaminosis
     Dosage: UNK
  6. FOLIC ACID [Suspect]
     Active Substance: FOLIC ACID
     Indication: Product used for unknown indication
     Dosage: UNK
  7. AMOXICILLIN [Suspect]
     Active Substance: AMOXICILLIN
     Indication: COVID-19
     Dosage: UNK, FOR 7 DAYS
  8. CEFEPIME [Suspect]
     Active Substance: CEFEPIME HYDROCHLORIDE
     Indication: H3N2 influenza
  9. CALCIUM [Suspect]
     Active Substance: CALCIUM
     Indication: Nutritional supplementation
     Dosage: UNK
  10. TRAZODONE HYDROCHLORIDE [Suspect]
     Active Substance: TRAZODONE HYDROCHLORIDE
     Indication: Antidepressant therapy
     Dosage: 150 MG, UNK
  11. METHOTREXATE SODIUM [Suspect]
     Active Substance: METHOTREXATE SODIUM
     Indication: Product used for unknown indication
     Dosage: 2 MG, WE
  12. METHOTREXATE [Suspect]
     Active Substance: METHOTREXATE
     Indication: Product used for unknown indication
     Dosage: 2.5 MG, QD
  13. AZITHROMYCIN [Suspect]
     Active Substance: AZITHROMYCIN
     Indication: Cough
     Dosage: 20 MG
  14. AZITHROMYCIN [Suspect]
     Active Substance: AZITHROMYCIN
     Indication: H3N2 influenza
     Dosage: UNK
     Route: 042
  15. AZITHROMYCIN [Suspect]
     Active Substance: AZITHROMYCIN
     Indication: Headache
  16. LEFLUNOMIDE [Suspect]
     Active Substance: LEFLUNOMIDE
     Indication: Product used for unknown indication
     Dosage: 20 MG, QD
  17. MORPHINE [Suspect]
     Active Substance: MORPHINE
     Indication: Chronic obstructive pulmonary disease
  18. DEXAMETHASONE [Suspect]
     Active Substance: DEXAMETHASONE
     Indication: Systemic lupus erythematosus
     Dosage: 150 MG
  19. DIENOGEST [Suspect]
     Active Substance: DIENOGEST
     Indication: Endometriosis
     Dosage: UNK
  20. HYDROCORTISONE [Suspect]
     Active Substance: HYDROCORTISONE
     Indication: Chronic obstructive pulmonary disease
     Dosage: UNK, TID
  21. HYDROCORTISONE [Suspect]
     Active Substance: HYDROCORTISONE
     Indication: H3N2 influenza
  22. AZATHIOPRINE [Concomitant]
     Active Substance: AZATHIOPRINE
     Indication: Product used for unknown indication
     Dosage: UNK
  23. DAPSONE [Concomitant]
     Active Substance: DAPSONE
     Indication: Systemic lupus erythematosus
     Dosage: 1 DF, QD(100 MG)

REACTIONS (66)
  - Anaemia [Recovering/Resolving]
  - Cholelithiasis [Unknown]
  - Respiratory disorder [Recovered/Resolved]
  - Bronchitis [Recovered/Resolved]
  - Condition aggravated [Recovered/Resolved]
  - Asthma [Recovered/Resolved]
  - Drug-induced liver injury [Recovering/Resolving]
  - Hospitalisation [Unknown]
  - COVID-19 [Recovered/Resolved]
  - Asthmatic crisis [Unknown]
  - Liver injury [Unknown]
  - Transfusion [Unknown]
  - Cataract operation [Unknown]
  - Acute febrile neutrophilic dermatosis [Unknown]
  - Lung disorder [Unknown]
  - Pneumonia [Recovering/Resolving]
  - Chronic obstructive pulmonary disease [Unknown]
  - Pulmonary fibrosis [Not Recovered/Not Resolved]
  - H3N2 influenza [Recovered/Resolved]
  - Systemic lupus erythematosus [Unknown]
  - Emphysema [Unknown]
  - Influenza [Recovered/Resolved]
  - Secretion discharge [Unknown]
  - Headache [Unknown]
  - Abdominal pain [Unknown]
  - Weight increased [Unknown]
  - Urinary tract infection [Unknown]
  - Sinusitis [Recovered/Resolved]
  - Herpes zoster [Unknown]
  - Weight decreased [Unknown]
  - Skin disorder [Recovering/Resolving]
  - Arthralgia [Unknown]
  - Paraesthesia [Unknown]
  - Coronavirus test positive [Unknown]
  - Malaise [Recovered/Resolved]
  - Abdominal pain upper [Recovered/Resolved]
  - Dermatitis allergic [Not Recovered/Not Resolved]
  - Rash [Not Recovered/Not Resolved]
  - Oropharyngeal pain [Recovered/Resolved]
  - Oxygen saturation decreased [Unknown]
  - Productive cough [Recovered/Resolved]
  - Dyspnoea [Recovered/Resolved]
  - Pain [Unknown]
  - Bacterial infection [Recovering/Resolving]
  - X-ray abnormal [Unknown]
  - Swelling [Unknown]
  - Wheezing [Recovering/Resolving]
  - Cough [Not Recovered/Not Resolved]
  - Pruritus [Unknown]
  - Blister [Unknown]
  - Endometriosis [Unknown]
  - Amenorrhoea [Unknown]
  - Depression [Unknown]
  - Emotional disorder [Unknown]
  - Crying [Unknown]
  - Irritability [Unknown]
  - Nervousness [Unknown]
  - Discouragement [Unknown]
  - General physical health deterioration [Unknown]
  - Fatigue [Unknown]
  - Malnutrition [Unknown]
  - Pyrexia [Unknown]
  - Underdose [Unknown]
  - Product dose omission issue [Unknown]
  - Inappropriate schedule of product administration [Unknown]
  - Product availability issue [Unknown]

NARRATIVE: CASE EVENT DATE: 20171203
